FAERS Safety Report 11753978 (Version 2)
Quarter: 2015Q4

REPORT INFORMATION
  Report Type: Spontaneous
  Country: IT (occurrence: IT)
  Receive Date: 20151119
  Receipt Date: 20151221
  Transmission Date: 20160304
  Serious: Yes (Other)
  Sender: FDA-Public Use
  Company Number: IT-TEVA-608575ACC

PATIENT
  Age: 64 Year
  Sex: Female
  Weight: 72 kg

DRUGS (4)
  1. MABTHERA [Suspect]
     Active Substance: RITUXIMAB
     Indication: PRIMARY MEDIASTINAL LARGE B-CELL LYMPHOMA
     Dosage: 656 MG CYCLICAL
     Route: 042
     Dates: start: 20150410, end: 20150527
  2. ADRIBLASTINA - 200MG/100ML SOLUZIONE INIETTABILE [Suspect]
     Active Substance: DOXORUBICIN HYDROCHLORIDE
     Indication: PRIMARY MEDIASTINAL LARGE B-CELL LYMPHOMA
     Dosage: 87 MG CYCLICAL
     Route: 042
     Dates: start: 20150327, end: 20150527
  3. VINCRISTINA TEVA ITALIA - 1 MG/ML SOLUZIONE INIETTABILE [Suspect]
     Active Substance: VINCRISTINE SULFATE
     Indication: PRIMARY MEDIASTINAL LARGE B-CELL LYMPHOMA
     Dosage: 1 MG CYCLICAL
     Route: 042
     Dates: start: 20150327, end: 20150527
  4. ENDOXAN BAXTER - 1 G POLVERE PER SOLUZIONE INIETTABILE - BAXTER S.P.A. [Suspect]
     Active Substance: CYCLOPHOSPHAMIDE
     Indication: PRIMARY MEDIASTINAL LARGE B-CELL LYMPHOMA
     Dosage: 985 MG CYCLICAL
     Route: 042
     Dates: start: 20150327, end: 20150527

REACTIONS (2)
  - Leukopenia [Recovered/Resolved]
  - Neutropenia [Recovered/Resolved]

NARRATIVE: CASE EVENT DATE: 20150410
